FAERS Safety Report 6411090-9 (Version None)
Quarter: 2009Q4

REPORT INFORMATION
  Report Type: 
  Country: None (occurrence: None)
  Receive Date: 20091020
  Receipt Date: 20091014
  Transmission Date: 20100525
  Serious: Yes (Death)
  Sender: FDA-Public Use
  Company Number: TPA2009A03211

PATIENT
  Age: 65 Year
  Sex: Male

DRUGS (1)
  1. ACTOS [Suspect]
     Indication: DRUG USE FOR UNKNOWN INDICATION
     Dosage: 45 MG, 1 IN D, PER ORAL
     Route: 048
     Dates: end: 20091012

REACTIONS (1)
  - HEPATIC NEOPLASM MALIGNANT [None]
